FAERS Safety Report 7394332-5 (Version None)
Quarter: 2011Q2

REPORT INFORMATION
  Report Type: 
  Country: None (occurrence: None)
  Receive Date: 20110405
  Receipt Date: 20110330
  Transmission Date: 20111010
  Serious: Yes (Other)
  Sender: FDA-Public Use
  Company Number: JP-PFIZER INC-2011068871

PATIENT
  Sex: Female

DRUGS (2)
  1. PREMARIN [Suspect]
     Indication: MENOPAUSE
     Dosage: 1 UNK, UNK
     Route: 048
     Dates: start: 20101101
  2. PROGESTERONE [Concomitant]

REACTIONS (2)
  - GENITAL HAEMORRHAGE [None]
  - FACE OEDEMA [None]
